FAERS Safety Report 6474938-8 (Version None)
Quarter: 2009Q4

REPORT INFORMATION
  Report Type: 
  Country: None (occurrence: None)
  Receive Date: 20091123
  Receipt Date: 20090921
  Transmission Date: 20100525
  Serious: No
  Sender: FDA-Public Use
  Company Number: 8052650

PATIENT
  Age: 47 Year
  Sex: Female
  Weight: 90.7 kg

DRUGS (5)
  1. CIMZIA [Suspect]
     Indication: RHEUMATOID ARTHRITIS
     Dosage: 400 MG 1/2W SC
     Route: 058
     Dates: start: 20080901, end: 20090801
  2. PREDNISONE [Concomitant]
  3. METHOTREXATE [Concomitant]
  4. PERCOCET [Concomitant]
  5. LISINOPRIL [Concomitant]

REACTIONS (6)
  - BLOOD URINE PRESENT [None]
  - COUGH [None]
  - HEADACHE [None]
  - HEPATIC ENZYME INCREASED [None]
  - INCONTINENCE [None]
  - NASOPHARYNGITIS [None]
